FAERS Safety Report 8126522-8 (Version None)
Quarter: 2012Q1

REPORT INFORMATION
  Report Type: 
  Country: None (occurrence: None)
  Receive Date: 20120210
  Receipt Date: 20120201
  Transmission Date: 20120608
  Serious: Yes (Hospitalization, Other)
  Sender: FDA-Public Use
  Company Number: BE-AMGEN-BELSP2012006290

PATIENT
  Age: 71 Year
  Sex: Female

DRUGS (9)
  1. LOSARTAN POTASSIUM [Concomitant]
     Dosage: 25 UNK, UNK
     Route: 048
  2. ENBREL [Suspect]
     Indication: PSORIASIS
     Dosage: 50 MG, WEEKLY
     Dates: start: 20100302, end: 20120130
  3. MESTINON [Concomitant]
     Dosage: UNK
     Route: 048
  4. PROBIOTICA [Concomitant]
     Dosage: UNK
     Route: 048
  5. GLUCOPHAGE [Concomitant]
     Dosage: 850 UNK, UNK
     Route: 048
  6. PANTOPRAZOLE [Concomitant]
     Dosage: UNK
     Route: 048
  7. ASPIRIN [Concomitant]
     Dosage: UNK
     Route: 048
  8. URFADYN [Concomitant]
     Dosage: UNK
     Route: 048
  9. MAGNESIUM [Concomitant]
     Dosage: UNK
     Route: 042

REACTIONS (1)
  - BREAST CANCER [None]
